FAERS Safety Report 24276317 (Version 1)
Quarter: 2024Q3

REPORT INFORMATION
  Report Type: Spontaneous
  Country: CN (occurrence: CN)
  Receive Date: 20240903
  Receipt Date: 20240903
  Transmission Date: 20241017
  Serious: Yes (Hospitalization)
  Sender: Steriscience PTE
  Company Number: CN-STERISCIENCE B.V.-2024-ST-001266

PATIENT
  Age: 48 Year
  Sex: Male

DRUGS (3)
  1. MEROPENEM [Suspect]
     Active Substance: MEROPENEM
     Indication: Listeriosis
     Dosage: 2 GRAM, Q8H
     Route: 065
  2. MOXIFLOXACIN [Suspect]
     Active Substance: MOXIFLOXACIN
     Indication: Listeriosis
     Dosage: 0.4 GRAM, QD
     Route: 065
  3. DEXAMETHASONE [Concomitant]
     Active Substance: DEXAMETHASONE
     Indication: Listeriosis
     Dosage: 10 MILLIGRAM, QD
     Route: 065

REACTIONS (4)
  - Condition aggravated [Unknown]
  - Muscle disorder [Unknown]
  - Infection [Unknown]
  - Off label use [Unknown]
